FAERS Safety Report 17606545 (Version 1)
Quarter: 2020Q1

REPORT INFORMATION
  Report Type: Report from Study
  Country: US (occurrence: US)
  Receive Date: 20200331
  Receipt Date: 20200331
  Transmission Date: 20200409
  Serious: Yes (Hospitalization)
  Sender: FDA-Public Use
  Company Number: US-SHIRE-US202005350

PATIENT
  Age: 53 Year
  Sex: Female

DRUGS (1)
  1. HUMAN NORMAL IMMUNOGLOBULIN; LIQUID [Suspect]
     Active Substance: HUMAN IMMUNOGLOBULIN G
     Indication: PRIMARY IMMUNODEFICIENCY SYNDROME
     Dosage: 35 GRAM, 1X A MONTH
     Route: 042

REACTIONS (11)
  - Blood pressure abnormal [Unknown]
  - Limb injury [Unknown]
  - Product supply issue [Unknown]
  - Diarrhoea [Unknown]
  - Migraine [Unknown]
  - Sinusitis [Unknown]
  - Infusion related reaction [Unknown]
  - Vomiting [Unknown]
  - Oropharyngeal pain [Unknown]
  - Pruritus [Unknown]
  - Incorrect dose administered [Unknown]

NARRATIVE: CASE EVENT DATE: 20200317
